FAERS Safety Report 22529250 (Version 1)
Quarter: 2023Q2

REPORT INFORMATION
  Report Type: Spontaneous
  Country: US (occurrence: US)
  Receive Date: 20230607
  Receipt Date: 20230607
  Transmission Date: 20230721
  Serious: Yes (Other)
  Sender: FDA-Public Use
  Company Number: US-drreddys-SPO/USA/23/0166327

PATIENT
  Age: 67 Year
  Sex: Female

DRUGS (1)
  1. TACROLIMUS [Suspect]
     Active Substance: TACROLIMUS
     Indication: Liver transplant
     Dates: start: 2011

REACTIONS (3)
  - Glomerulonephritis [Recovering/Resolving]
  - Lacrimal gland enlargement [Recovering/Resolving]
  - Cryoglobulinaemia [Recovering/Resolving]

NARRATIVE: CASE EVENT DATE: 20170101
